FAERS Safety Report 7142410-8 (Version None)
Quarter: 2010Q4

REPORT INFORMATION
  Report Type: 
  Country: None (occurrence: None)
  Receive Date: 20101207
  Receipt Date: 20101129
  Transmission Date: 20110411
  Serious: Yes (Death, Hospitalization, Other)
  Sender: FDA-Public Use
  Company Number: RO-CELGENEUS-135-21880-10102610

PATIENT
  Sex: Female
  Weight: 88 kg

DRUGS (3)
  1. REVLIMID [Suspect]
     Indication: MULTIPLE MYELOMA
     Route: 048
     Dates: start: 20100929, end: 20101019
  2. REVLIMID [Suspect]
     Route: 048
     Dates: start: 20101025
  3. REVLIMID [Suspect]
     Route: 048
     Dates: start: 20101108, end: 20101123

REACTIONS (3)
  - MULTIPLE MYELOMA [None]
  - PANCYTOPENIA [None]
  - SEPTIC SHOCK [None]
